FAERS Safety Report 8503918-3 (Version None)
Quarter: 2012Q3

REPORT INFORMATION
  Report Type: 
  Country: None (occurrence: None)
  Receive Date: 20120711
  Receipt Date: 20120703
  Transmission Date: 20120928
  Serious: Yes (Hospitalization)
  Sender: FDA-Public Use
  Company Number: US-009507513-1107USA00018

PATIENT

DRUGS (18)
  1. FOSAMAX [Suspect]
     Indication: OSTEOPOROSIS
     Dosage: 10 MG, QD
     Route: 048
     Dates: start: 19970701, end: 20010406
  2. VITAMIN D (UNSPECIFIED) [Concomitant]
     Indication: ROUTINE HEALTH MAINTENANCE
     Dosage: UNK UNK, QD
     Dates: start: 19970101
  3. MK-0240 [Concomitant]
     Indication: PRODUCT USED FOR UNKNOWN INDICATION
  4. CALCIUM (UNSPECIFIED) (+) VITAMIN D (UNSPECIFIED) [Concomitant]
     Indication: ROUTINE HEALTH MAINTENANCE
     Dosage: 600 MG, BID
  5. [THERAPY UNSPECIFIED] [Concomitant]
     Indication: PRODUCT USED FOR UNKNOWN INDICATION
     Dosage: BLOOD PRESSURE MEDICATION
  6. ESTRACE [Concomitant]
     Indication: PRODUCT USED FOR UNKNOWN INDICATION
     Dosage: 2 MG, QD
  7. FOSAMAX [Suspect]
     Dosage: 70 MG, QW
     Route: 048
     Dates: start: 20010406, end: 20110122
  8. CALCIUM (UNSPECIFIED) [Concomitant]
     Indication: ROUTINE HEALTH MAINTENANCE
     Dosage: 1200 MG, QD
     Dates: start: 19970101
  9. PROVERA [Concomitant]
     Indication: PRODUCT USED FOR UNKNOWN INDICATION
     Dosage: 2.5 MG, QD
  10. ASPIRIN [Concomitant]
     Indication: CARDIOVASCULAR EVENT PROPHYLAXIS
     Dosage: 81 MG, QD
     Dates: start: 20091101
  11. MK-0152 [Concomitant]
     Indication: PRODUCT USED FOR UNKNOWN INDICATION
     Dosage: 12.5 MG, QD
     Dates: start: 20101201
  12. ALLEGRA [Concomitant]
     Indication: SEASONAL ALLERGY
     Dosage: 180 MG, QD
     Dates: start: 20090101
  13. ALENDRONATE SODIUM [Suspect]
     Indication: OSTEOPOROSIS
  14. HORMONES (UNSPECIFIED) [Concomitant]
     Indication: PRODUCT USED FOR UNKNOWN INDICATION
     Dates: start: 19930101, end: 20020101
  15. NEXIUM [Concomitant]
     Indication: PRODUCT USED FOR UNKNOWN INDICATION
  16. SINGULAIR [Concomitant]
     Indication: SEASONAL ALLERGY
     Dosage: 10 MG, QD
     Route: 048
     Dates: start: 20090101
  17. MULTI-VITAMINS [Concomitant]
     Indication: ROUTINE HEALTH MAINTENANCE
     Dosage: 1 DAILY
     Dates: start: 19970101
  18. TENORMIN [Concomitant]
     Indication: PRODUCT USED FOR UNKNOWN INDICATION

REACTIONS (58)
  - METRORRHAGIA [None]
  - DYSPEPSIA [None]
  - SCIATICA [None]
  - DYSURIA [None]
  - ARTHRALGIA [None]
  - TOOTH IMPACTED [None]
  - PAIN IN JAW [None]
  - HYPERSOMNIA [None]
  - ANAEMIA [None]
  - NAIL DISORDER [None]
  - TEMPOROMANDIBULAR JOINT SYNDROME [None]
  - ECZEMA [None]
  - DIZZINESS [None]
  - BUNION [None]
  - PEPTIC ULCER [None]
  - RHINITIS ALLERGIC [None]
  - MUSCLE STRAIN [None]
  - FOOT FRACTURE [None]
  - GASTRITIS [None]
  - SPLINTER [None]
  - FEMUR FRACTURE [None]
  - HYPOTENSION [None]
  - VAGINAL HAEMORRHAGE [None]
  - BLOOD CHOLESTEROL INCREASED [None]
  - FOOT DEFORMITY [None]
  - DRY EYE [None]
  - NEUROMA [None]
  - RHINITIS [None]
  - DUODENAL ULCER [None]
  - ADJUSTMENT DISORDER WITH DEPRESSED MOOD [None]
  - HYPERLIPIDAEMIA [None]
  - MUSCLE SPASMS [None]
  - COLONIC POLYP [None]
  - LIBIDO DECREASED [None]
  - THYROID NEOPLASM [None]
  - EPISTAXIS [None]
  - NASAL TURBINATE HYPERTROPHY [None]
  - NEOPLASM SKIN [None]
  - FUNGAL INFECTION [None]
  - STRESS [None]
  - HYPERCHOLESTEROLAEMIA [None]
  - GAIT DISTURBANCE [None]
  - PAIN IN EXTREMITY [None]
  - SLEEP APNOEA SYNDROME [None]
  - CERVICAL DYSPLASIA [None]
  - ABDOMINAL PAIN UPPER [None]
  - BLEPHARITIS [None]
  - ACUTE SINUSITIS [None]
  - CONJUNCTIVITIS ALLERGIC [None]
  - METATARSUS PRIMUS VARUS [None]
  - MUSCULOSKELETAL CHEST PAIN [None]
  - EAR DISORDER [None]
  - SPUTUM PURULENT [None]
  - EXTREMITY CONTRACTURE [None]
  - HAND FRACTURE [None]
  - NASAL SEPTUM DEVIATION [None]
  - GASTROOESOPHAGEAL REFLUX DISEASE [None]
  - SEASONAL ALLERGY [None]
